FAERS Safety Report 4546527-3 (Version None)
Quarter: 2005Q1

REPORT INFORMATION
  Report Type: 
  Country: None (occurrence: None)
  Receive Date: 20050106
  Receipt Date: 20041230
  Transmission Date: 20050727
  Serious: Yes (Hospitalization)
  Sender: FDA-Public Use
  Company Number: FR-GLAXOSMITHKLINE-B0363118A

PATIENT
  Age: 68 Year
  Sex: Female

DRUGS (10)
  1. ZOPHREN [Suspect]
     Route: 042
     Dates: start: 20041202, end: 20041202
  2. TEMOZOLOMIDE [Suspect]
     Indication: OLIGODENDROGLIOMA
     Dosage: 1UNIT PER DAY
     Route: 065
     Dates: start: 20041202, end: 20041202
  3. DEPAKENE [Concomitant]
     Dosage: 1000MG PER DAY
     Route: 048
     Dates: start: 20040917
  4. PROZAC [Concomitant]
     Route: 065
  5. ACETAMINOPHEN [Concomitant]
     Route: 065
  6. MOPRAL [Concomitant]
     Route: 065
  7. GAVISCON [Concomitant]
     Route: 065
  8. SPASFON [Concomitant]
     Route: 065
  9. SOLU-MEDROL [Concomitant]
     Route: 065
     Dates: start: 20041202
  10. RADIOTHERAPY [Concomitant]
     Dates: start: 20041202

REACTIONS (4)
  - NAUSEA [None]
  - RASH [None]
  - VASODILATION PROCEDURE [None]
  - VOMITING [None]
